FAERS Safety Report 14076104 (Version 3)
Quarter: 2018Q1

REPORT INFORMATION
  Report Type: Spontaneous
  Country: AT (occurrence: AT)
  Receive Date: 20171011
  Receipt Date: 20180308
  Transmission Date: 20180508
  Serious: Yes (Other)
  Sender: FDA-Public Use
  Company Number: AT-ELI_LILLY_AND_COMPANY-AT201709012025

PATIENT
  Age: 55 Year
  Sex: Female

DRUGS (12)
  1. EBRANTIL                           /00631802/ [Suspect]
     Active Substance: URAPIDIL HYDROCHLORIDE
     Indication: PRODUCT USED FOR UNKNOWN INDICATION
     Dosage: 30 MG, DAILY
     Route: 048
     Dates: end: 20170626
  2. NORVASC [Suspect]
     Active Substance: AMLODIPINE BESYLATE
     Indication: PRODUCT USED FOR UNKNOWN INDICATION
     Dosage: 5 MG, DAILY
     Route: 048
     Dates: start: 20170625
  3. ACECOMB [Suspect]
     Active Substance: HYDROCHLOROTHIAZIDE\LISINOPRIL
     Indication: PRODUCT USED FOR UNKNOWN INDICATION
     Dosage: 1 DF, DAILY
     Route: 048
     Dates: start: 20170626
  4. ZYPREXA [Suspect]
     Active Substance: OLANZAPINE
     Indication: PRODUCT USED FOR UNKNOWN INDICATION
     Dosage: 5 MG, DAILY
     Route: 048
     Dates: start: 20170625, end: 20170625
  5. TEMESTA                            /00273201/ [Suspect]
     Active Substance: LORAZEPAM
     Dosage: 1 MG, PRN
     Route: 048
     Dates: start: 20170628
  6. ZYPREXA [Suspect]
     Active Substance: OLANZAPINE
     Dosage: 10 MG, DAILY
     Route: 048
     Dates: start: 20170626, end: 20170629
  7. ABILIFY [Suspect]
     Active Substance: ARIPIPRAZOLE
     Indication: PRODUCT USED FOR UNKNOWN INDICATION
     Dosage: 5 MG, DAILY
     Route: 048
     Dates: start: 20170626, end: 20170629
  8. GEROLAMIC [Concomitant]
     Indication: PRODUCT USED FOR UNKNOWN INDICATION
     Dosage: 25 MG, DAILY
     Route: 048
     Dates: start: 20170626, end: 20170711
  9. ABILIFY [Suspect]
     Active Substance: ARIPIPRAZOLE
     Dosage: 15 MG, DAILY
     Route: 048
     Dates: start: 20170630
  10. TEMESTA                            /00273201/ [Suspect]
     Active Substance: LORAZEPAM
     Indication: PRODUCT USED FOR UNKNOWN INDICATION
     Dosage: 1 MG, DAILY
     Route: 048
     Dates: start: 20170625, end: 20170627
  11. ACEMIN                             /00011902/ [Suspect]
     Active Substance: CHLORPROMAZINE HYDROCHLORIDE
     Indication: PRODUCT USED FOR UNKNOWN INDICATION
     Dosage: 5 MG, DAILY
     Route: 048
     Dates: start: 20170625
  12. GEROLAMIC [Concomitant]
     Dosage: 100 MG, UNKNOWN
     Route: 048
     Dates: start: 20170712

REACTIONS (5)
  - Hypotension [Recovered/Resolved]
  - Fall [Unknown]
  - Syncope [Recovered/Resolved]
  - Laceration [Unknown]
  - Disorientation [Unknown]

NARRATIVE: CASE EVENT DATE: 20170626
